FAERS Safety Report 7055014-2 (Version None)
Quarter: 2010Q4

REPORT INFORMATION
  Report Type: 
  Country: None (occurrence: None)
  Receive Date: 20101021
  Receipt Date: 20100423
  Transmission Date: 20110411
  Serious: Yes (Other)
  Sender: FDA-Public Use
  Company Number: US-BAYER-201020433NA

PATIENT
  Age: 21 Year
  Sex: Female

DRUGS (1)
  1. YAZ [Suspect]
     Indication: CONTRACEPTION
     Route: 048
     Dates: start: 20090601, end: 20090801

REACTIONS (2)
  - ABDOMINAL DISTENSION [None]
  - GALLBLADDER DISORDER [None]
